FAERS Safety Report 12071561 (Version 2)
Quarter: 2016Q1

REPORT INFORMATION
  Report Type: Report from Study
  Country: HR (occurrence: HR)
  Receive Date: 20160212
  Receipt Date: 20160311
  Transmission Date: 20160526
  Serious: Yes (Hospitalization, Other)
  Sender: FDA-Public Use
  Company Number: HR-ROCHE-1708704

PATIENT
  Sex: Male

DRUGS (23)
  1. VALCYTE [Concomitant]
     Active Substance: VALGANCICLOVIR HYDROCHLORIDE
     Indication: PRODUCT USED FOR UNKNOWN INDICATION
     Dosage: 225 MG,  DAILY DOSE
     Route: 048
     Dates: start: 2014
  2. TAMSULOSIN [Concomitant]
     Active Substance: TAMSULOSIN
  3. PROGRAF [Suspect]
     Active Substance: TACROLIMUS\TACROLIMUS ANHYDROUS
     Indication: IMMUNOSUPPRESSANT DRUG THERAPY
     Route: 048
     Dates: start: 20140820
  4. ALDIZEM [Concomitant]
     Indication: PRODUCT USED FOR UNKNOWN INDICATION
     Dosage: 180 MG,  DAILY DOSE
     Route: 048
     Dates: start: 2014
  5. DILTIAZEM [Concomitant]
     Active Substance: DILTIAZEM
  6. URAPIDIL [Concomitant]
     Active Substance: URAPIDIL
  7. PROGRAF [Suspect]
     Active Substance: TACROLIMUS\TACROLIMUS ANHYDROUS
     Indication: IMMUNOSUPPRESSANT DRUG THERAPY
     Dosage: 0.75 MG, TWICE DAILY
     Route: 065
     Dates: start: 20141030
  8. DECORTIN [Suspect]
     Active Substance: PREDNISONE
     Indication: IMMUNOSUPPRESSANT DRUG THERAPY
     Dosage: 10 MG, DAILY DOSE
     Route: 048
     Dates: start: 20140820
  9. PHYSIOTENS [Concomitant]
     Active Substance: MOXONIDINE
     Indication: PRODUCT USED FOR UNKNOWN INDICATION
     Dosage: 0.4 MG, DAILY DOSE
     Route: 048
     Dates: start: 2014
  10. SINERSUL [Concomitant]
     Active Substance: SULFAMETHOXAZOLE\TRIMETHOPRIM
     Indication: PRODUCT USED FOR UNKNOWN INDICATION
     Dosage: 240 MG,  DAILY DOSE
     Route: 048
     Dates: start: 2014
  11. SULFAMETHOXAZOLE/TRIMETHOPRIM [Concomitant]
     Active Substance: SULFAMETHOXAZOLE\TRIMETHOPRIM
     Route: 065
  12. EBRANTIL [Concomitant]
     Active Substance: URAPIDIL
     Indication: PRODUCT USED FOR UNKNOWN INDICATION
     Dosage: 90 MG, DAILY DOSE
     Route: 048
     Dates: start: 2014
  13. OMNIC [Concomitant]
     Active Substance: TAMSULOSIN HYDROCHLORIDE
     Indication: PRODUCT USED FOR UNKNOWN INDICATION
     Dosage: 0.4 MG,  DAILY DOSE
     Route: 048
     Dates: start: 2014
  14. PANTOPRAZOLE [Concomitant]
     Active Substance: PANTOPRAZOLE SODIUM
  15. MYCOPHENOLATE MOFETIL. [Suspect]
     Active Substance: MYCOPHENOLATE MOFETIL
     Indication: IMMUNOSUPPRESSANT DRUG THERAPY
     Dosage: 3000 MG, DAILY DOSE
     Route: 065
     Dates: start: 20140820
  16. MYCOPHENOLATE MOFETIL. [Suspect]
     Active Substance: MYCOPHENOLATE MOFETIL
     Dosage: 1500 MG, DAILY DOSE
     Route: 065
     Dates: start: 20141030
  17. CONTROLOC [Concomitant]
     Active Substance: PANTOPRAZOLE SODIUM
     Indication: PRODUCT USED FOR UNKNOWN INDICATION
     Dosage: 40 MG, DAILY DOSE
     Route: 048
     Dates: start: 2014
  18. VALGANCICLOVIR HYDROCHLORIDE. [Concomitant]
     Active Substance: VALGANCICLOVIR HYDROCHLORIDE
     Route: 065
  19. FLUCONAZOLE. [Concomitant]
     Active Substance: FLUCONAZOLE
  20. BISOPROLOL FUMARATE. [Concomitant]
     Active Substance: BISOPROLOL FUMARATE
  21. MOXONIDINE [Concomitant]
     Active Substance: MOXONIDINE
  22. DIFLUCAN [Concomitant]
     Active Substance: FLUCONAZOLE
     Indication: PRODUCT USED FOR UNKNOWN INDICATION
     Dosage: 4X1 ML MG DAILY
     Route: 048
     Dates: start: 2014
  23. CONCOR COR [Concomitant]
     Active Substance: BISOPROLOL FUMARATE
     Indication: PRODUCT USED FOR UNKNOWN INDICATION
     Dosage: 2.5 MG,  DAILY DOSE
     Route: 048
     Dates: start: 2014

REACTIONS (2)
  - Graft loss [Recovered/Resolved with Sequelae]
  - Polyomavirus-associated nephropathy [Recovered/Resolved with Sequelae]

NARRATIVE: CASE EVENT DATE: 20141030
